FAERS Safety Report 8587177 (Version 2)
Quarter: 2013Q2

REPORT INFORMATION
  Report Type: Spontaneous
  Country: US (occurrence: US)
  Receive Date: 20120530
  Receipt Date: 20130410
  Transmission Date: 20140414
  Serious: Yes (Hospitalization)
  Sender: FDA-Public Use
  Company Number: CHPA2012US004763

PATIENT
  Age: 43 Year
  Sex: Male

DRUGS (11)
  1. EXCEDRIN MIGRAINE [Suspect]
     Indication: MIGRAINE
     Dosage: 2 DF, QD
     Route: 048
     Dates: start: 201101
  2. TRILEPTAL [Concomitant]
     Indication: PSYCHIATRIC SYMPTOM
     Dosage: 900 MG, QD
     Route: 048
  3. XANAX - SLOW RELEASE [Concomitant]
     Indication: PSYCHIATRIC SYMPTOM
     Dosage: 1 MG, TID
     Route: 048
     Dates: start: 2003
  4. XANAX [Concomitant]
     Indication: PSYCHIATRIC SYMPTOM
     Dosage: .25 MG, QD
     Route: 048
     Dates: start: 2003
  5. AMBIEN [Concomitant]
     Indication: SLEEP DISORDER
     Dosage: 12.5 MG, QD
     Route: 048
     Dates: start: 2003
  6. LATUDA [Concomitant]
     Indication: PSYCHIATRIC SYMPTOM
     Dosage: 60 MG, QD
     Route: 048
     Dates: start: 2011
  7. VICODIN [Concomitant]
     Indication: PAIN
     Dosage: 1000 MG, PRN
     Route: 048
     Dates: start: 2008
  8. TOPAMAX [Concomitant]
     Dosage: 100 MG, PRN
     Route: 048
     Dates: start: 2008
  9. LAMICTAL ^BURROUGHS WELLCOME^ [Concomitant]
     Indication: PSYCHIATRIC SYMPTOM
     Dosage: 600 MG, BID
     Route: 048
  10. REGELAN [Concomitant]
     Dosage: UNK, UNK
  11. FENTANYL [Concomitant]
     Dosage: UNK, UNK

REACTIONS (2)
  - Migraine [Unknown]
  - Overdose [Unknown]
